FAERS Safety Report 11863428 (Version 1)
Quarter: 2015Q4

REPORT INFORMATION
  Report Type: Spontaneous
  Country: US (occurrence: US)
  Receive Date: 20151223
  Receipt Date: 20151223
  Transmission Date: 20160305
  Serious: No
  Sender: FDA-Public Use
  Company Number: US-TEVA-618838ACC

PATIENT
  Age: 22 Year
  Sex: Female
  Weight: 75.36 kg

DRUGS (2)
  1. PARAGARD T 380A [Suspect]
     Active Substance: COPPER
     Indication: CONTRACEPTION
     Dates: start: 20151201, end: 20151204
  2. PRO-AIR HFA INHALER [Concomitant]
     Indication: ASTHMA

REACTIONS (2)
  - Exposure during breast feeding [Unknown]
  - Device expulsion [Recovered/Resolved]

NARRATIVE: CASE EVENT DATE: 20151204
